FAERS Safety Report 9578440 (Version 1)
Quarter: 2013Q4

REPORT INFORMATION
  Report Type: Spontaneous
  Country: US (occurrence: US)
  Receive Date: 20131001
  Receipt Date: 20131001
  Transmission Date: 20140711
  Serious: No
  Sender: FDA-Public Use
  Company Number: US-AMGEN-USASP2013013266

PATIENT
  Sex: Female
  Weight: 63.49 kg

DRUGS (5)
  1. ENBREL [Suspect]
     Indication: PRODUCT USED FOR UNKNOWN INDICATION
     Dosage: 50 MG, TWICE A WEEK 72-96 HOUR APART
  2. PRENATAL                           /02014401/ [Concomitant]
     Dosage: 1 CAPSULE
  3. CYCLEN [Concomitant]
     Dosage: UNK
  4. FISH OIL [Concomitant]
     Dosage: UNK
  5. ZYRTEC [Concomitant]
     Dosage: 10 MG, UNK

REACTIONS (7)
  - Drug ineffective [Unknown]
  - Psoriasis [Unknown]
  - Injection site reaction [Unknown]
  - Injection site swelling [Unknown]
  - Injection site erythema [Unknown]
  - Injection site irritation [Unknown]
  - Injection site warmth [Unknown]
